FAERS Safety Report 4596361-3 (Version None)
Quarter: 2005Q1

REPORT INFORMATION
  Report Type: 
  Country: None (occurrence: None)
  Receive Date: 20050228
  Receipt Date: 20050218
  Transmission Date: 20050727
  Serious: Yes (Hospitalization)
  Sender: FDA-Public Use
  Company Number: 2005034887

PATIENT
  Age: 28 Year
  Sex: Male
  Weight: 118 kg

DRUGS (1)
  1. ZITHROMAX [Suspect]
     Indication: ILL-DEFINED DISORDER
     Dosage: 500 MG (500 MG, 1 IN 1 D, ORAL)
     Route: 048

REACTIONS (2)
  - BLOOD PRESSURE SYSTOLIC INCREASED [None]
  - TACHYARRHYTHMIA [None]
